FAERS Safety Report 8537943-3 (Version None)
Quarter: 2012Q3

REPORT INFORMATION
  Report Type: 
  Country: None (occurrence: None)
  Receive Date: 20120725
  Receipt Date: 20120719
  Transmission Date: 20120928
  Serious: Yes (Death)
  Sender: FDA-Public Use
  Company Number: GB-ROCHE-1090387

PATIENT
  Sex: Female

DRUGS (9)
  1. BISOPROLOL FUMARATE [Concomitant]
     Route: 048
  2. CYCLIZINE [Concomitant]
     Route: 048
  3. LETROZOLE [Concomitant]
     Route: 048
  4. AMLODIPINE [Concomitant]
     Route: 048
  5. CALCICHEW D3 [Concomitant]
     Route: 048
  6. BONIVA [Suspect]
     Indication: BREAST CANCER METASTATIC
     Dosage: DISCONTINUED ON 28/DEC/2011 DUE TO SAE.
     Route: 048
     Dates: start: 20100904, end: 20111228
  7. OMEPRAZOLE [Concomitant]
     Route: 048
  8. ACETAMINOPHEN [Concomitant]
     Route: 048
  9. DALTEPARIN SODIUM [Concomitant]
     Route: 048

REACTIONS (1)
  - THROMBOTIC THROMBOCYTOPENIC PURPURA [None]
